FAERS Safety Report 20373037 (Version 5)
Quarter: 2023Q2

REPORT INFORMATION
  Report Type: Report from Study
  Country: DK (occurrence: None)
  Receive Date: 20220125
  Receipt Date: 20230527
  Transmission Date: 20230721
  Serious: Yes (Other)
  Sender: FDA-Public Use
  Company Number: DK-ROCHE-3003621

PATIENT
  Age: 52 Year
  Sex: Female
  Weight: 47 kg

DRUGS (14)
  1. ATEZOLIZUMAB [Suspect]
     Active Substance: ATEZOLIZUMAB
     Indication: Triple negative breast cancer
     Dosage: DATE OF MOST RECENT DOSE OF ATEZOLIZUMAB PRIOR TO AE ONSET WAS 28/DEC/2021, DOSE OF LAST ATEZOLIZUMA
     Route: 041
     Dates: start: 20211214
  2. PACLITAXEL [Suspect]
     Active Substance: PACLITAXEL
     Indication: Triple negative breast cancer
     Dosage: DATE OF MOST RECENT DOSE OF PACLITAXEL PRIOR TO AE ONSET WAS 113 MG AND DATE OF MOST RECENT DOSE OF
     Route: 042
     Dates: start: 20211214
  3. PREDNISOLONE [Concomitant]
     Active Substance: PREDNISOLONE
     Indication: Immune-mediated hepatitis
     Dosage: 100 MG/D
     Route: 042
  4. TORSEMIDE [Concomitant]
     Active Substance: TORSEMIDE
     Indication: Hypertension
  5. TORSEMIDE [Concomitant]
     Active Substance: TORSEMIDE
     Indication: Generalised oedema
  6. TORSEMIDE [Concomitant]
     Active Substance: TORSEMIDE
     Indication: Pleural effusion
  7. HYDROMORPHONE [Concomitant]
     Active Substance: HYDROMORPHONE
  8. PIRITRAMIDE [Concomitant]
     Active Substance: PIRITRAMIDE
  9. LORAZEPAM [Concomitant]
     Active Substance: LORAZEPAM
     Indication: Sedation
  10. SODIUM PICOSULFATE [Concomitant]
     Active Substance: SODIUM PICOSULFATE
     Indication: Constipation
  11. PANTOPRAZOLE [Concomitant]
     Active Substance: PANTOPRAZOLE
     Indication: Gastrointestinal disorder prophylaxis
  12. KEPPRA [Concomitant]
     Active Substance: LEVETIRACETAM
     Dates: start: 20220114, end: 20220515
  13. MIDAZOLAM [Concomitant]
     Active Substance: MIDAZOLAM
     Dates: start: 20220114, end: 20220114
  14. AMITRIPTYLINE [Concomitant]
     Active Substance: AMITRIPTYLINE

REACTIONS (1)
  - Posterior reversible encephalopathy syndrome [Recovered/Resolved with Sequelae]

NARRATIVE: CASE EVENT DATE: 20220114
